FAERS Safety Report 4471599-4 (Version None)
Quarter: 2004Q4

REPORT INFORMATION
  Report Type: 
  Country: None (occurrence: None)
  Receive Date: 20041012
  Receipt Date: 20041008
  Transmission Date: 20050328
  Serious: Yes (Hospitalization)
  Sender: FDA-Public Use
  Company Number: FR-GLAXOSMITHKLINE-B0347553A

PATIENT
  Age: 49 Year
  Sex: Female

DRUGS (2)
  1. CLAMOXYL [Suspect]
     Indication: PYELONEPHRITIS
     Route: 048
     Dates: start: 20040916, end: 20040918
  2. BACTRIM DS [Suspect]
     Indication: CYSTITIS
     Route: 048
     Dates: start: 20040911, end: 20040916

REACTIONS (3)
  - CYTOLYTIC HEPATITIS [None]
  - PURPURA [None]
  - PYREXIA [None]
